FAERS Safety Report 16689024 (Version 1)
Quarter: 2019Q3

REPORT INFORMATION
  Report Type: Spontaneous
  Country: None (occurrence: US)
  Receive Date: 20190809
  Receipt Date: 20190809
  Transmission Date: 20191004
  Serious: No
  Sender: FDA-Public Use
  Company Number: US-BIOGEN-2015BI112620

PATIENT
  Age: 55 Year
  Sex: Female

DRUGS (2)
  1. PLEGRIDY [Suspect]
     Active Substance: PEGINTERFERON BETA-1A
     Route: 065
     Dates: start: 20150608, end: 20151107
  2. PLEGRIDY [Suspect]
     Active Substance: PEGINTERFERON BETA-1A
     Indication: MULTIPLE SCLEROSIS
     Route: 058
     Dates: start: 20150606

REACTIONS (8)
  - Mood altered [Unknown]
  - Injection site urticaria [Recovered/Resolved]
  - Fatigue [Unknown]
  - Personality change [Recovered/Resolved]
  - Injection site erythema [Not Recovered/Not Resolved]
  - Memory impairment [Unknown]
  - Influenza like illness [Recovered/Resolved]
  - Irritability [Unknown]

NARRATIVE: CASE EVENT DATE: 201506
